FAERS Safety Report 4436933-X (Version None)
Quarter: 2004Q3

REPORT INFORMATION
  Report Type: 
  Country: None (occurrence: None)
  Receive Date: 20040726
  Receipt Date: 20040322
  Transmission Date: 20050211
  Serious: No
  Sender: FDA-Public Use
  Company Number: USA040362717

PATIENT
  Age: 57 Year
  Sex: Female
  Weight: 60 kg

DRUGS (5)
  1. FORTEO [Suspect]
     Dates: start: 20031101
  2. CELEBREX [Concomitant]
  3. CALCIUM CARBONATE [Concomitant]
  4. PAXIL [Concomitant]
  5. METAMUCIL-2 [Concomitant]

REACTIONS (3)
  - BONE PAIN [None]
  - MUSCLE CRAMP [None]
  - PAIN IN EXTREMITY [None]
